FAERS Safety Report 21419800 (Version 1)
Quarter: 2022Q4

REPORT INFORMATION
  Report Type: Spontaneous
  Country: US (occurrence: None)
  Receive Date: 20221005
  Receipt Date: 20221005
  Transmission Date: 20230112
  Serious: No
  Sender: FDA-Public Use
  Company Number: None

PATIENT
  Age: 60 Year
  Sex: Female
  Weight: 70.31 kg

DRUGS (1)
  1. SIMPONI [Suspect]
     Active Substance: GOLIMUMAB
     Indication: Psoriatic arthropathy
     Dosage: FREQUENCY : MONTHLY;?
     Route: 058
     Dates: start: 202203

REACTIONS (1)
  - Shoulder operation [None]
